FAERS Safety Report 6569883-3 (Version None)
Quarter: 2010Q1

REPORT INFORMATION
  Report Type: 
  Country: None (occurrence: None)
  Receive Date: 20100204
  Receipt Date: 20100125
  Transmission Date: 20100710
  Serious: Yes (Hospitalization)
  Sender: FDA-Public Use
  Company Number: PHHY2010FR04804

PATIENT
  Sex: Female

DRUGS (2)
  1. MYCOPHENOLIC ACID [Suspect]
     Indication: RENAL TRANSPLANT
     Dosage: 360 MG DAILY
     Dates: start: 20071117, end: 20080825
  2. NEORAL [Suspect]
     Indication: RENAL TRANSPLANT
     Dosage: 150 MG DAILY
     Dates: start: 20071118

REACTIONS (9)
  - ESCHERICHIA INFECTION [None]
  - HAEMOGLOBIN DECREASED [None]
  - INFECTION [None]
  - KLEBSIELLA INFECTION [None]
  - NEUTROPHIL COUNT DECREASED [None]
  - PANCYTOPENIA [None]
  - PLATELET COUNT DECREASED [None]
  - PYREXIA [None]
  - WHITE BLOOD CELL COUNT DECREASED [None]
